FAERS Safety Report 11402378 (Version 1)
Quarter: 2015Q3

REPORT INFORMATION
  Report Type: Spontaneous
  Country: US (occurrence: US)
  Receive Date: 20150821
  Receipt Date: 20150821
  Transmission Date: 20151125
  Serious: No
  Sender: FDA-Public Use
  Company Number: US-ROCHE-1292384

PATIENT
  Sex: Female

DRUGS (3)
  1. CELEXA (UNITED STATES) [Concomitant]
  2. PEGASYS [Suspect]
     Active Substance: PEGINTERFERON ALFA-2A
     Indication: CHRONIC HEPATITIS C
     Route: 065
     Dates: start: 20130812
  3. RIBAVIRIN. [Suspect]
     Active Substance: RIBAVIRIN
     Indication: CHRONIC HEPATITIS C
     Route: 065
     Dates: start: 20130812

REACTIONS (4)
  - Dry mouth [Unknown]
  - Hand fracture [Unknown]
  - Pain [Unknown]
  - Fall [Unknown]
